FAERS Safety Report 8941069 (Version 1)
Quarter: 2012Q4

REPORT INFORMATION
  Report Type: 
  Country: US (occurrence: US)
  Receive Date: 20121203
  Receipt Date: 20121203
  Transmission Date: 20130627
  Serious: No
  Sender: FDA-Public Use
  Company Number: US-009507513-1212USA000488

PATIENT
  Age: 3 Year
  Sex: Male
  Weight: 20.41 kg

DRUGS (1)
  1. CLARITIN [Suspect]
     Indication: PRODUCT USED FOR UNKNOWN INDICATION
     Dosage: UNK, Once
     Route: 048
     Dates: start: 20121103

REACTIONS (2)
  - Accidental exposure to product by child [Unknown]
  - Overdose [Unknown]
